FAERS Safety Report 5213147-7 (Version None)
Quarter: 2007Q1

REPORT INFORMATION
  Report Type: 
  Country: None (occurrence: None)
  Receive Date: 20070116
  Receipt Date: 20070109
  Transmission Date: 20070707
  Serious: Yes (Death)
  Sender: FDA-Public Use
  Company Number: 089

PATIENT
  Sex: Male
  Weight: 63.5036 kg

DRUGS (2)
  1. FAZACLO ODT [Suspect]
     Indication: SCHIZOPHRENIA
     Dosage: 400 MG PO DAILY
     Route: 048
     Dates: start: 20060505, end: 20061023
  2. RISPERDAL [Concomitant]

REACTIONS (1)
  - MYOCARDIAL INFARCTION [None]
